FAERS Safety Report 23805570 (Version 1)
Quarter: 2024Q2

REPORT INFORMATION
  Report Type: Spontaneous
  Country: FR (occurrence: FR)
  Receive Date: 20240502
  Receipt Date: 20240502
  Transmission Date: 20240716
  Serious: Yes (Hospitalization)
  Sender: FDA-Public Use
  Company Number: None

PATIENT

DRUGS (1)
  1. RIVAROXABAN [Suspect]
     Active Substance: RIVAROXABAN
     Indication: Pulmonary embolism
     Dosage: UNK, (001)
     Route: 048
     Dates: start: 20240201, end: 20240411

REACTIONS (1)
  - Pleurisy [Recovering/Resolving]

NARRATIVE: CASE EVENT DATE: 20240404
